FAERS Safety Report 17064581 (Version 1)
Quarter: 2019Q4

REPORT INFORMATION
  Report Type: Spontaneous
  Country: US (occurrence: US)
  Receive Date: 20191023
  Receipt Date: 20191023
  Transmission Date: 20200122
  Serious: Yes (Other)
  Sender: FDA-Public Use
  Company Number: None

PATIENT
  Age: 53 Year
  Sex: Male
  Weight: 97.98 kg

DRUGS (3)
  1. RANITIDINE 150MG TABLET [Suspect]
     Active Substance: RANITIDINE
     Indication: DYSPEPSIA
     Dosage: ?          QUANTITY:150 MG MILLIGRAM(S);?
     Route: 048
     Dates: start: 20180418, end: 20190930
  2. LISINOPRIL. [Concomitant]
     Active Substance: LISINOPRIL
  3. ZANTAC [Concomitant]
     Active Substance: RANITIDINE HYDROCHLORIDE

REACTIONS (5)
  - Decreased appetite [None]
  - Abdominal discomfort [None]
  - Abdominal pain upper [None]
  - Poor quality sleep [None]
  - Renal pain [None]

NARRATIVE: CASE EVENT DATE: 20180418
